FAERS Safety Report 9224102 (Version 1)
Quarter: 2013Q1

REPORT INFORMATION
  Report Type: Spontaneous
  Country: US (occurrence: None)
  Receive Date: 20120830
  Receipt Date: 20120830
  Transmission Date: 20140127
  Serious: Yes (Other)
  Sender: FDA-Public Use
  Company Number: PHHY2011US62610

PATIENT
  Age: 57 Year
  Sex: Female

DRUGS (8)
  1. EXFORGE [Suspect]
     Dosage: 1 DF, (160/MG) PER DAY
  2. RANEXA (RANOLAZINE) [Concomitant]
  3. CYCLOBENZAPRINE (CYCLOBENZAPRINE) [Concomitant]
  4. LYRICA (PREGABALIN) [Concomitant]
  5. EVOXAC (CEVIMELINE HYDROCHLORIDE) [Concomitant]
  6. HYDROCODONE [Concomitant]
  7. METOPROLOL (METOPROLOL) [Concomitant]
  8. DEXILANT [Concomitant]

REACTIONS (1)
  - Hypertension [None]
